FAERS Safety Report 25630106 (Version 1)
Quarter: 2025Q3

REPORT INFORMATION
  Report Type: Spontaneous
  Country: RU (occurrence: RU)
  Receive Date: 20250801
  Receipt Date: 20250801
  Transmission Date: 20251021
  Serious: Yes (Death, Other)
  Sender: JOHNSON AND JOHNSON
  Company Number: RU-JNJFOC-20250737745

PATIENT
  Sex: Female

DRUGS (1)
  1. UPTRAVI [Suspect]
     Active Substance: SELEXIPAG
     Indication: Pulmonary arterial hypertension
     Route: 048

REACTIONS (2)
  - Death [Fatal]
  - Pulmonary arterial hypertension [Unknown]
